FAERS Safety Report 7169819-0 (Version None)
Quarter: 2010Q4

REPORT INFORMATION
  Report Type: 
  Country: None (occurrence: None)
  Receive Date: 20101214
  Receipt Date: 20101214
  Transmission Date: 20110411
  Serious: Yes (Hospitalization)
  Sender: FDA-Public Use
  Company Number: None

PATIENT
  Age: 18 Year
  Sex: Female
  Weight: 54.4316 kg

DRUGS (1)
  1. CLEAR CARE CIBA VISION [Suspect]
     Indication: CONTACT LENS THERAPY
     Dosage: OPHTHALMIC
     Route: 047
     Dates: start: 20101209, end: 20101209

REACTIONS (4)
  - ACCIDENTAL EXPOSURE [None]
  - CHEMICAL BURNS OF EYE [None]
  - CORNEAL ABRASION [None]
  - WRONG DRUG ADMINISTERED [None]
